FAERS Safety Report 18157704 (Version 1)
Quarter: 2020Q3

REPORT INFORMATION
  Report Type: Other
  Country: IR (occurrence: IR)
  Receive Date: 20200817
  Receipt Date: 20200817
  Transmission Date: 20201103
  Serious: Yes (Other)
  Sender: FDA-Public Use
  Company Number: IR-AJANTA PHARMA USA INC.-2088686

PATIENT
  Age: 12 Year
  Sex: Female

DRUGS (5)
  1. CASPOFUNGIN ACETATE. [Concomitant]
     Active Substance: CASPOFUNGIN ACETATE
  2. VORICONAZOLE. [Suspect]
     Active Substance: VORICONAZOLE
     Indication: ASPERGILLUS INFECTION
     Dates: start: 20190706
  3. BEVACIZUMAB. [Concomitant]
     Active Substance: BEVACIZUMAB
  4. MEROPENEM. [Concomitant]
     Active Substance: MEROPENEM
  5. TEICOPLANIN [Concomitant]
     Active Substance: TEICOPLANIN

REACTIONS (2)
  - Posterior reversible encephalopathy syndrome [Recovered/Resolved]
  - Seizure [Recovered/Resolved]

NARRATIVE: CASE EVENT DATE: 201907
